FAERS Safety Report 8124901-6 (Version None)
Quarter: 2012Q1

REPORT INFORMATION
  Report Type: 
  Country: None (occurrence: None)
  Receive Date: 20120209
  Receipt Date: 20120203
  Transmission Date: 20120608
  Serious: Yes (Other)
  Sender: FDA-Public Use
  Company Number: JP-PFIZER INC-2010095929

PATIENT
  Sex: Female

DRUGS (5)
  1. LYRICA [Interacting]
     Dosage: 75 MG, 3X/DAY
     Route: 048
     Dates: start: 20100722
  2. GABAPENTIN [Suspect]
     Dosage: 1800MG A DAY
  3. LYRICA [Interacting]
     Dosage: 150MG A DAY
     Dates: start: 20120119
  4. MORPHINE HYDROCHLORIDE [Interacting]
     Dosage: UNK
     Dates: start: 20090301
  5. LYRICA [Interacting]
     Dosage: 200 MG/DAY, 100 MG EACH IN THE MORNING AND NIGHT
     Dates: start: 20120202

REACTIONS (10)
  - HERPES ZOSTER [None]
  - POLLAKIURIA [None]
  - CONSTIPATION [None]
  - NAUSEA [None]
  - HEADACHE [None]
  - DRUG INTERACTION [None]
  - PRURITUS [None]
  - PAIN [None]
  - DIZZINESS [None]
  - DRUG INEFFECTIVE [None]
